FAERS Safety Report 8183973-3 (Version None)
Quarter: 2012Q1

REPORT INFORMATION
  Report Type: 
  Country: None (occurrence: None)
  Receive Date: 20120305
  Receipt Date: 20120228
  Transmission Date: 20120608
  Serious: Yes (Hospitalization)
  Sender: FDA-Public Use
  Company Number: FR-FRI-1000028689

PATIENT
  Sex: Male

DRUGS (3)
  1. ESCITALOPRAM [Suspect]
     Route: 048
     Dates: start: 20111020, end: 20111130
  2. VAXIGRIP [Suspect]
     Indication: ANTIVIRAL PROPHYLAXIS
     Dosage: SINGLE DOSE ON 22-NOV-2011
     Route: 030
     Dates: start: 20111122, end: 20111122
  3. AMOXICILLIN TRIHYDRATE [Suspect]
     Indication: COUGH
     Route: 048
     Dates: start: 20111027

REACTIONS (2)
  - VASCULAR PURPURA [None]
  - LEUKOCYTOCLASTIC VASCULITIS [None]
